FAERS Safety Report 7669799-5 (Version None)
Quarter: 2011Q3

REPORT INFORMATION
  Report Type: 
  Country: None (occurrence: None)
  Receive Date: 20110808
  Receipt Date: 20110728
  Transmission Date: 20111222
  Serious: Yes (Hospitalization)
  Sender: FDA-Public Use
  Company Number: DK-ASTRAZENECA-2011SE45387

PATIENT
  Age: 90 Year
  Sex: Male
  Weight: 73 kg

DRUGS (3)
  1. LOSARTAN POTASSIUM [Concomitant]
  2. FUROSEMIDE [Concomitant]
  3. BRILIQUE [Suspect]
     Indication: ACUTE MYOCARDIAL INFARCTION
     Route: 048
     Dates: start: 20110707, end: 20110715

REACTIONS (2)
  - BLOOD UREA INCREASED [None]
  - BLOOD CREATININE INCREASED [None]
